FAERS Safety Report 4976403-3 (Version None)
Quarter: 2006Q2

REPORT INFORMATION
  Report Type: 
  Country: None (occurrence: None)
  Receive Date: 20060412
  Receipt Date: 20060404
  Transmission Date: 20061013
  Serious: Yes (Hospitalization)
  Sender: FDA-Public Use
  Company Number: 02100-JPN-06-0130

PATIENT
  Age: 52 Year
  Sex: Female

DRUGS (1)
  1. CILOSTAZOL [Suspect]
     Indication: ANGIOPATHY
     Dosage: 200 MG ORAL
     Route: 048
     Dates: start: 20060304

REACTIONS (5)
  - ABDOMINAL DISCOMFORT [None]
  - FALL [None]
  - PAIN [None]
  - PELVIC FRACTURE [None]
  - RIB FRACTURE [None]
